FAERS Safety Report 9082284 (Version 1)
Quarter: 2013Q1

REPORT INFORMATION
  Report Type: Report from Study
  Country: US (occurrence: US)
  Receive Date: 20130130
  Receipt Date: 20130130
  Transmission Date: 20140127
  Serious: No
  Sender: FDA-Public Use
  Company Number: US-ABBOTT-12P-163-0966832-00

PATIENT
  Age: 29 Year
  Sex: Female
  Weight: 64.47 kg

DRUGS (3)
  1. HUMIRA 40 MG/0.8 ML PEN [Suspect]
     Indication: CROHN^S DISEASE
     Dosage: LOADING DOSE
     Dates: start: 20120730
  2. LIALDA [Concomitant]
     Indication: CROHN^S DISEASE
  3. LO LOESTRIN [Concomitant]
     Indication: CONTRACEPTION

REACTIONS (3)
  - Fatigue [Recovered/Resolved]
  - Asthenia [Recovered/Resolved]
  - Injection site pain [Not Recovered/Not Resolved]
